FAERS Safety Report 4520977-3 (Version None)
Quarter: 2004Q4

REPORT INFORMATION
  Report Type: 
  Country: None (occurrence: None)
  Receive Date: 20041206
  Receipt Date: 20041123
  Transmission Date: 20050328
  Serious: Yes (Hospitalization, Other)
  Sender: FDA-Public Use
  Company Number: 2004097040

PATIENT
  Age: 40 Year
  Sex: Male

DRUGS (3)
  1. ATARAX [Suspect]
     Indication: PROPHYLAXIS
  2. DELTASONE [Suspect]
     Indication: PROPHYLAXIS
     Dosage: 20 MG
  3. IOPAMIDOL [Suspect]
     Indication: SCAN WITH CONTRAST

REACTIONS (7)
  - ACUTE GENERALISED EXANTHEMATOUS PUSTULOSIS [None]
  - HYPEREOSINOPHILIC SYNDROME [None]
  - PYREXIA [None]
  - RASH [None]
  - RASH ERYTHEMATOUS [None]
  - TOXIC SKIN ERUPTION [None]
  - VASCULITIS [None]
